FAERS Safety Report 4999466-8 (Version None)
Quarter: 2006Q2

REPORT INFORMATION
  Report Type: 
  Country: None (occurrence: None)
  Receive Date: 20060510
  Receipt Date: 20060510
  Transmission Date: 20061013
  Serious: Yes (Life-Threatening)
  Sender: FDA-Public Use
  Company Number: None

PATIENT
  Age: 62 Year
  Sex: Female
  Weight: 101.3 kg

DRUGS (14)
  1. POTASSIUM CHLORIDE [Suspect]
     Indication: HYPOKALAEMIA
     Dosage: 20 MEQ/HR IV  Q6H (20MEQ)  (3 DOSES)
     Route: 042
     Dates: start: 20060220, end: 20060221
  2. CALCIUM CHLORIDE [Concomitant]
  3. DOCUSATE [Concomitant]
  4. INSULIN [Concomitant]
  5. LANSOPRAZOLE [Concomitant]
  6. LEVOTHYROXINE SODIUM [Concomitant]
  7. METOPROLOL TARTRATE [Concomitant]
  8. RANITIDINE [Concomitant]
  9. SODIUM BICARB [Concomitant]
  10. VANCOMYCIN [Concomitant]
  11. EPINEPHRINE [Concomitant]
  12. PROPOFOL [Concomitant]
  13. HEPARIN [Concomitant]
  14. ALBUTEROL SULFATE AND IPRATROPIUM BROMIDE [Concomitant]

REACTIONS (1)
  - BLOOD POTASSIUM INCREASED [None]
